FAERS Safety Report 6259310-8 (Version None)
Quarter: 2009Q3

REPORT INFORMATION
  Report Type: 
  Country: None (occurrence: None)
  Receive Date: 20090707
  Receipt Date: 20090701
  Transmission Date: 20100115
  Serious: Yes (Death)
  Sender: FDA-Public Use
  Company Number: US-GENENTECH-286124

PATIENT
  Sex: Male
  Weight: 113.6 kg

DRUGS (1)
  1. EFALIZUMAB [Suspect]
     Indication: PSORIASIS
     Dosage: 2 MG, UNK
     Route: 058
     Dates: start: 20050601

REACTIONS (1)
  - DEATH [None]
